FAERS Safety Report 20079243 (Version 1)
Quarter: 2021Q4

REPORT INFORMATION
  Report Type: Spontaneous
  Country: PL (occurrence: PL)
  Receive Date: 20211117
  Receipt Date: 20211117
  Transmission Date: 20220304
  Serious: Yes (Other)
  Sender: FDA-Public Use
  Company Number: PL-002147023-NVSC2021PL248443

PATIENT
  Age: 61 Year
  Sex: Female

DRUGS (2)
  1. DASATINIB [Suspect]
     Active Substance: DASATINIB
     Indication: Product used for unknown indication
     Dosage: 100 MG, QD
     Route: 065
     Dates: start: 201702, end: 201705
  2. DASATINIB [Suspect]
     Active Substance: DASATINIB
     Dosage: 100 MG, QOD (EVERY 2ND DAY)
     Route: 065
     Dates: start: 201705, end: 201808

REACTIONS (6)
  - Anaphylactic reaction [Unknown]
  - Thrombocytopenia [Unknown]
  - Mast cell activation syndrome [Unknown]
  - Infection [Unknown]
  - Haemoglobin decreased [Unknown]
  - Off label use [Unknown]

NARRATIVE: CASE EVENT DATE: 20170101
